FAERS Safety Report 6548976-0 (Version None)
Quarter: 2010Q1

REPORT INFORMATION
  Report Type: 
  Country: None (occurrence: None)
  Receive Date: 20100119
  Receipt Date: 20100104
  Transmission Date: 20100710
  Serious: Yes (Other)
  Sender: FDA-Public Use
  Company Number: IDA-00320

PATIENT
  Age: 64 Year
  Sex: Female

DRUGS (22)
  1. INDERAL [Suspect]
     Indication: CARDIAC DISORDER
     Dates: start: 20030101
  2. INDERAL [Suspect]
     Indication: MIGRAINE
     Dates: start: 20030101
  3. DYAZIDE [Suspect]
     Indication: MENIERE'S DISEASE
     Dates: start: 20030101
  4. ESTALIS SEQUI (ESTRADIOL, NORETHISTERONE) [Suspect]
     Indication: MENOPAUSE
     Dosage: 14 MG TRANSDERMAL
     Route: 062
     Dates: start: 20010706, end: 20050501
  5. ESTRADIOL [Suspect]
     Indication: MENOPAUSE
     Dosage: 2 MG / 2 MG / 2 MG
     Dates: start: 20010404, end: 20010601
  6. ESTRADIOL [Suspect]
     Indication: MENOPAUSE
     Dosage: 2 MG / 2 MG / 2 MG
     Dates: start: 19850101, end: 20040923
  7. ESTRADIOL [Suspect]
     Indication: MENOPAUSE
     Dosage: 2 MG / 2 MG / 2 MG
     Dates: start: 20061108, end: 20070801
  8. ESTRATEST [Suspect]
     Indication: MENOPAUSE
     Dosage: 1.25 MG
     Dates: start: 20001227, end: 20070801
  9. MEDROXYPROGESTERONE ACETATE [Suspect]
     Dates: end: 20070326
  10. PROVERA [Suspect]
     Indication: MENOPAUSE
     Dosage: 2.5 MG
     Dates: start: 19850101, end: 20070801
  11. TESTIM [Suspect]
     Indication: MENOPAUSE
     Dates: start: 20060810, end: 20070801
  12. ACYCLOVIR [Concomitant]
  13. ASPIRIN [Concomitant]
  14. CARDIZEM [Concomitant]
  15. CARISOPRODOL [Concomitant]
  16. FENTANYL [Concomitant]
  17. (HYDROCODONE) [Concomitant]
  18. LOVASTATIN [Concomitant]
  19. (OXYCODONE) [Concomitant]
  20. (PARACETAMOL) [Concomitant]
  21. PROMETHAZINE [Concomitant]
  22. (TRAZODONE) [Concomitant]

REACTIONS (12)
  - ANXIETY [None]
  - BLOOD CHOLESTEROL INCREASED [None]
  - BREAST CANCER FEMALE [None]
  - CARDIAC DISORDER [None]
  - CEREBROVASCULAR ACCIDENT [None]
  - DEPRESSION [None]
  - HERPES VIRUS INFECTION [None]
  - MENIERE'S DISEASE [None]
  - MIGRAINE [None]
  - NAUSEA [None]
  - PAIN [None]
  - TREMOR [None]
